FAERS Safety Report 18472323 (Version 1)
Quarter: 2020Q4

REPORT INFORMATION
  Report Type: Other
  Country: CA (occurrence: CA)
  Receive Date: 20201106
  Receipt Date: 20201106
  Transmission Date: 20210114
  Serious: Yes (Other)
  Sender: FDA-Public Use
  Company Number: CA-APOTEX-2020AP021001

PATIENT
  Sex: Male

DRUGS (1)
  1. EZETIMIBE. [Suspect]
     Active Substance: EZETIMIBE
     Indication: BLOOD CHOLESTEROL
     Dosage: UNK
     Route: 065

REACTIONS (7)
  - Rash [Unknown]
  - Chapped lips [Unknown]
  - Anaphylactic reaction [Unknown]
  - Dry mouth [Unknown]
  - Urticaria [Unknown]
  - Angioedema [Unknown]
  - Lip swelling [Unknown]
